FAERS Safety Report 11966209 (Version 3)
Quarter: 2016Q2

REPORT INFORMATION
  Report Type: Spontaneous
  Country: GR (occurrence: GR)
  Receive Date: 20160127
  Receipt Date: 20160404
  Transmission Date: 20160815
  Serious: Yes (Life-Threatening, Hospitalization, Disabling, Other)
  Sender: FDA-Public Use
  Company Number: GR-009507513-1601GRC009436

PATIENT
  Age: 71 Year
  Sex: Female
  Weight: 71 kg

DRUGS (5)
  1. KEYTRUDA [Suspect]
     Active Substance: PEMBROLIZUMAB
     Dosage: 2 MG/KG; Q21D
     Route: 042
     Dates: start: 20150924, end: 20150924
  2. OMEPRAZOLE. [Concomitant]
     Active Substance: OMEPRAZOLE
     Indication: PROPHYLAXIS
     Dosage: 20 MG, QD
     Route: 048
  3. LEVETIRACETAM. [Concomitant]
     Active Substance: LEVETIRACETAM
     Indication: METASTASES TO CENTRAL NERVOUS SYSTEM
     Dosage: 1500 MG, QD
     Route: 048
  4. KEYTRUDA [Suspect]
     Active Substance: PEMBROLIZUMAB
     Indication: NON-SMALL CELL LUNG CANCER
     Dosage: 2 MG/KG; Q21D
     Route: 042
     Dates: start: 20150903, end: 20150903
  5. ASPIRIN. [Concomitant]
     Active Substance: ASPIRIN
     Dosage: 80 MG, QD
     Route: 048

REACTIONS (3)
  - Diverticular perforation [Not Recovered/Not Resolved]
  - Enterovesical fistula [Not Recovered/Not Resolved]
  - Enteritis [Not Recovered/Not Resolved]

NARRATIVE: CASE EVENT DATE: 201510
